FAERS Safety Report 10626843 (Version 1)
Quarter: 2014Q4

REPORT INFORMATION
  Report Type: Spontaneous
  Country: CA (occurrence: CA)
  Receive Date: 20141204
  Receipt Date: 20141204
  Transmission Date: 20150529
  Serious: Yes (Other)
  Sender: FDA-Public Use
  Company Number: CA-TEVA-525750USA

PATIENT
  Age: 52 Year
  Sex: Male
  Weight: 77.18 kg

DRUGS (8)
  1. TIAZAC XC [Concomitant]
     Dosage: TABLET (EXTENDEDRELEASE)
  2. METHOTREXATE INJECTION, USP [Suspect]
     Active Substance: METHOTREXATE
     Indication: PRODUCT USED FOR UNKNOWN INDICATION
     Dosage: 2.8571 MILLIGRAM DAILY; SOLUTION INTRAARTERIAL
     Route: 051
  3. APO FOLIC ACID TAB 5MG [Concomitant]
  4. HYDROXYCHLOROQUINE [Concomitant]
     Active Substance: HYDROXYCHLOROQUINE
  5. PENLAC [Concomitant]
     Active Substance: CICLOPIROX
     Dosage: SOLUTION TOPICAL
  6. CRESTOR [Concomitant]
     Active Substance: ROSUVASTATIN CALCIUM
  7. LAMISIL [Concomitant]
     Active Substance: TERBINAFINE HYDROCHLORIDE
  8. SULFASALAZINE. [Concomitant]
     Active Substance: SULFASALAZINE
     Dosage: TABLET (ENTERICCOATED)

REACTIONS (4)
  - Pain [Unknown]
  - Headache [Unknown]
  - Paraesthesia [Unknown]
  - Quality of life decreased [Unknown]
